FAERS Safety Report 17507562 (Version 1)
Quarter: 2020Q1

REPORT INFORMATION
  Report Type: Spontaneous
  Country: IT (occurrence: IT)
  Receive Date: 20200306
  Receipt Date: 20200306
  Transmission Date: 20200409
  Serious: Yes (Other)
  Sender: FDA-Public Use
  Company Number: IT-AUROBINDO-AUR-APL-2020-010918

PATIENT
  Age: 17 Year
  Sex: Female

DRUGS (2)
  1. ACETYLCYSTEINE. [Suspect]
     Active Substance: ACETYLCYSTEINE
     Indication: UPPER RESPIRATORY TRACT INFECTION
     Dosage: 600 MILLIGRAM, EVERY OTHER DAY
     Route: 048
     Dates: start: 20191209, end: 20191212
  2. IBUPROFEN. [Suspect]
     Active Substance: IBUPROFEN
     Indication: UPPER RESPIRATORY TRACT INFECTION
     Dosage: 400 MILLIGRAM, EVERY OTHER DAY
     Route: 048
     Dates: start: 20191209, end: 20191212

REACTIONS (4)
  - Adverse drug reaction [Recovering/Resolving]
  - Lip oedema [Recovering/Resolving]
  - Eyelid oedema [Recovering/Resolving]
  - Erythema [Recovering/Resolving]

NARRATIVE: CASE EVENT DATE: 20191212
